FAERS Safety Report 23381630 (Version 1)
Quarter: 2024Q1

REPORT INFORMATION
  Report Type: Spontaneous
  Country: RS (occurrence: RS)
  Receive Date: 20240109
  Receipt Date: 20240109
  Transmission Date: 20240409
  Serious: Yes (Other)
  Sender: FDA-Public Use
  Company Number: RS-TEVA-VS-3141890

PATIENT
  Age: 82 Year

DRUGS (1)
  1. PANTOPRAZOLE SODIUM [Suspect]
     Active Substance: PANTOPRAZOLE SODIUM
     Indication: Product used for unknown indication
     Dosage: 1X1
     Route: 048
     Dates: end: 202312

REACTIONS (3)
  - Hip fracture [Unknown]
  - Upper limb fracture [Unknown]
  - Lower limb fracture [Unknown]
